FAERS Safety Report 6607739-8 (Version None)
Quarter: 2010Q1

REPORT INFORMATION
  Report Type: 
  Country: None (occurrence: None)
  Receive Date: 20100301
  Receipt Date: 20100217
  Transmission Date: 20100710
  Serious: No
  Sender: FDA-Public Use
  Company Number: US-ELI_LILLY_AND_COMPANY-US201002006360

PATIENT
  Sex: Male

DRUGS (3)
  1. CYMBALTA [Suspect]
     Indication: DEPRESSION
     Dosage: 90 MG, UNK
     Dates: start: 20080101
  2. CYMBALTA [Suspect]
     Dosage: 120 MG, UNK
  3. CYMBALTA [Suspect]
     Dosage: 60 MG, UNK

REACTIONS (1)
  - LIVER FUNCTION TEST ABNORMAL [None]
